FAERS Safety Report 20358616 (Version 1)
Quarter: 2022Q1

REPORT INFORMATION
  Report Type: Spontaneous
  Country: US (occurrence: US)
  Receive Date: 20220120
  Receipt Date: 20220120
  Transmission Date: 20220423
  Serious: No
  Sender: FDA-Public Use
  Company Number: US-CELGENE-USA-20220104402

PATIENT
  Sex: Male

DRUGS (1)
  1. ZEPOSIA [Suspect]
     Active Substance: OZANIMOD HYDROCHLORIDE
     Indication: Crohn^s disease
     Dosage: .92 MILLIGRAM
     Route: 048
     Dates: start: 20211011

REACTIONS (1)
  - Drug ineffective [Unknown]
